FAERS Safety Report 5489184-4 (Version None)
Quarter: 2007Q4

REPORT INFORMATION
  Report Type: 
  Country: None (occurrence: None)
  Receive Date: 20071018
  Receipt Date: 20070605
  Transmission Date: 20080405
  Serious: No
  Sender: FDA-Public Use
  Company Number: US-BRISTOL-MYERS SQUIBB COMPANY-13804216

PATIENT
  Sex: Female
  Weight: 57 kg

DRUGS (1)
  1. MEGACE [Suspect]
     Indication: WEIGHT INCREASED
     Route: 048

REACTIONS (6)
  - AMENORRHOEA [None]
  - ARTHRALGIA [None]
  - FOOD CRAVING [None]
  - HEADACHE [None]
  - HEART RATE INCREASED [None]
  - JOINT STIFFNESS [None]
